FAERS Safety Report 9227374 (Version 2)
Quarter: 2013Q2

REPORT INFORMATION
  Report Type: Spontaneous
  Country: US (occurrence: US)
  Receive Date: 20130412
  Receipt Date: 20130503
  Transmission Date: 20140414
  Serious: Yes (Death, Other)
  Sender: FDA-Public Use
  Company Number: US-PFIZER INC-2013113012

PATIENT
  Age: 75 Year
  Sex: Male

DRUGS (16)
  1. REVATIO [Suspect]
     Indication: PULMONARY ARTERIAL HYPERTENSION
     Dosage: 20 MG, 3X/DAY
     Route: 048
     Dates: start: 20130122
  2. ALLOPURINOL [Concomitant]
     Dosage: 100 MG, UNK
     Route: 048
  3. DILTIAZEM [Concomitant]
     Dosage: 180 MG, UNK
  4. ECOTRIN [Concomitant]
     Dosage: 81 MG, UNK
  5. EFFIENT [Concomitant]
     Dosage: 10 MG, UNK
  6. FISH OIL [Concomitant]
     Dosage: 1000 MG, UNK
  7. FOLIC ACID [Concomitant]
     Dosage: 1 MG, UNK
  8. LANTUS [Concomitant]
     Dosage: 100 UNIT/ML, UNK
     Route: 058
  9. NIACIN [Concomitant]
     Dosage: 500 MG, UNK
  10. NOVOLOG [Concomitant]
     Dosage: 100 UNIT/ML, UNK
     Route: 058
  11. ONGLYZA [Concomitant]
     Dosage: 2.5 MG, UNK
  12. POTASSIUM CHLORIDE [Concomitant]
     Dosage: 20 MEQ, THREE TIMES A DAY
     Route: 048
  13. SIMVASTATIN [Concomitant]
     Dosage: 40 MG, UNK
  14. TORSEMIDE [Concomitant]
     Dosage: 20 MG, TAKE 3 TABLETS, 2X/DAY
     Route: 048
  15. TORSEMIDE [Concomitant]
     Dosage: 20 MG, TAKE FOUR TABLETS, 2X/DAY
     Route: 048
  16. ZAROXOLYN [Concomitant]
     Dosage: 2.5 MG, TAKE ONE TABLET, ALTERNATE DAY
     Route: 048

REACTIONS (1)
  - Myocardial infarction [Fatal]
